FAERS Safety Report 18559349 (Version 2)
Quarter: 2020Q4

REPORT INFORMATION
  Report Type: Spontaneous
  Country: US (occurrence: US)
  Receive Date: 20201130
  Receipt Date: 20201216
  Transmission Date: 20210114
  Serious: No
  Sender: FDA-Public Use
  Company Number: US-JNJFOC-20201144307

PATIENT

DRUGS (1)
  1. IMODIUM A-D [Suspect]
     Active Substance: LOPERAMIDE HYDROCHLORIDE
     Indication: IRRITABLE BOWEL SYNDROME
     Dosage: SOMETIMES 3
     Route: 065
     Dates: start: 20130814

REACTIONS (2)
  - Inappropriate schedule of product administration [Unknown]
  - Product packaging difficult to open [Unknown]
